FAERS Safety Report 14276516 (Version 2)
Quarter: 2017Q4

REPORT INFORMATION
  Report Type: Spontaneous
  Country: JP (occurrence: JP)
  Receive Date: 20171212
  Receipt Date: 20171226
  Transmission Date: 20180321
  Serious: Yes (Other)
  Sender: FDA-Public Use
  Company Number: JP-ELI_LILLY_AND_COMPANY-JP201712001308

PATIENT
  Sex: Female

DRUGS (1)
  1. EVISTA [Suspect]
     Active Substance: RALOXIFENE HYDROCHLORIDE
     Indication: PRODUCT USED FOR UNKNOWN INDICATION
     Route: 048

REACTIONS (5)
  - Road traffic accident [Recovered/Resolved]
  - Deep vein thrombosis [Unknown]
  - Off label use [Unknown]
  - Pulmonary embolism [Unknown]
  - Limb fracture [Unknown]

NARRATIVE: CASE EVENT DATE: 2017
